FAERS Safety Report 6196268-4 (Version None)
Quarter: 2009Q2

REPORT INFORMATION
  Report Type: 
  Country: None (occurrence: None)
  Receive Date: 20090515
  Receipt Date: 20080623
  Transmission Date: 20091009
  Serious: Yes (Other)
  Sender: FDA-Public Use
  Company Number: 08-202

PATIENT
  Age: 63 Year
  Sex: Male
  Weight: 70 kg

DRUGS (2)
  1. NEUPOGEN [Suspect]
     Indication: NEUTROPENIA
     Dosage: 480 MCG, TWICE DAY, SC
     Route: 058
  2. CLOZAPINE [Suspect]
     Dosage: 300 MG, TWICE DAILY, PO
     Route: 048

REACTIONS (1)
  - AGRANULOCYTOSIS [None]
